FAERS Safety Report 24603219 (Version 1)
Quarter: 2024Q4

REPORT INFORMATION
  Report Type: Spontaneous
  Country: CN (occurrence: CN)
  Receive Date: 20241111
  Receipt Date: 20241111
  Transmission Date: 20250115
  Serious: Yes (Hospitalization)
  Sender: NOVARTIS
  Company Number: CN-002147023-NVSC2024CN216128

PATIENT
  Age: 34 Year
  Sex: Male

DRUGS (2)
  1. CARBAMAZEPINE [Suspect]
     Active Substance: CARBAMAZEPINE
     Indication: Mental disorder
     Dosage: 0.1 G, BID
     Route: 048
     Dates: start: 20241020, end: 20241023
  2. QUETIAPINE FUMARATE [Concomitant]
     Active Substance: QUETIAPINE FUMARATE
     Indication: Mental disorder
     Dosage: 0.1 G, BID
     Route: 048
     Dates: start: 20241020, end: 20241023

REACTIONS (3)
  - Drug eruption [Recovering/Resolving]
  - Hyperpyrexia [Recovered/Resolved]
  - Dermatitis allergic [Unknown]

NARRATIVE: CASE EVENT DATE: 20241023
